FAERS Safety Report 8974591 (Version 1)
Quarter: 2012Q4

REPORT INFORMATION
  Report Type: Report from Study
  Country: US (occurrence: US)
  Receive Date: 20121220
  Receipt Date: 20121220
  Transmission Date: 20130627
  Serious: Yes (Hospitalization)
  Sender: FDA-Public Use
  Company Number: US-US-EMD SERONO, INC.-7182457

PATIENT
  Sex: Male
  Weight: 141 kg

DRUGS (4)
  1. REBIF [Suspect]
     Indication: MULTIPLE SCLEROSIS
     Route: 058
     Dates: start: 20080922
  2. LISINOPRIL [Concomitant]
     Indication: HYPERTENSION
  3. WARFARIN [Concomitant]
     Indication: THROMBOSIS
  4. ZANTAC [Concomitant]
     Indication: GASTROOESOPHAGEAL REFLUX DISEASE

REACTIONS (3)
  - Urinary tract infection [Recovered/Resolved]
  - Clostridium difficile infection [Unknown]
  - Injection site erythema [Recovered/Resolved]
